FAERS Safety Report 8846991 (Version 3)
Quarter: 2012Q4

REPORT INFORMATION
  Report Type: 
  Country: US (occurrence: US)
  Receive Date: 20121018
  Receipt Date: 20121102
  Transmission Date: 20130627
  Serious: Yes (Life-Threatening, Congenital Anomaly)
  Sender: FDA-Public Use
  Company Number: US-PFIZER INC-2012254572

PATIENT
  Sex: Female

DRUGS (11)
  1. FLUCONAZOLE [Suspect]
     Indication: INFECTION
     Dosage: 150 mg, UNK
     Route: 064
     Dates: start: 201005
  2. FLUCONAZOLE [Suspect]
     Indication: DRUG EXPOSURE IN UTERO
  3. DEPO-PROVERA [Suspect]
     Indication: DRUG EXPOSURE IN UTERO
     Dosage: UNK
     Route: 064
  4. MEDROXYPROGESTERONE [Suspect]
     Indication: DRUG EXPOSURE IN UTERO
     Dosage: UNK
     Route: 064
     Dates: start: 200901, end: 200910
  5. TOPAMAX [Suspect]
     Indication: DRUG EXPOSURE IN UTERO
     Dosage: 50 mg, UNK
     Route: 064
     Dates: start: 20081108, end: 20090927
  6. NASONEX [Suspect]
     Indication: DRUG EXPOSURE IN UTERO
     Dosage: 50 ug, 2x/day
     Route: 064
  7. PANADEINE CO [Suspect]
     Indication: DRUG EXPOSURE IN UTERO
     Dosage: UNK
     Route: 064
  8. AMOXICILLIN [Suspect]
     Indication: DRUG EXPOSURE IN UTERO
     Dosage: UNK
     Route: 064
  9. PROMETHAZINE [Suspect]
     Indication: DRUG EXPOSURE IN UTERO
     Dosage: 25 mg, one every 4 hours
     Route: 064
  10. PRENATAL VITAMINS [Suspect]
     Indication: DRUG EXPOSURE IN UTERO
     Route: 064
  11. IRON [Concomitant]
     Indication: DRUG EXPOSURE IN UTERO
     Route: 064

REACTIONS (7)
  - Exposure during pregnancy [Unknown]
  - Congenital anomaly [Unknown]
  - Cleft palate [Recovering/Resolving]
  - Limb deformity [Unknown]
  - Cleft uvula [Unknown]
  - Cleft lip [Recovered/Resolved]
  - Speech disorder developmental [Unknown]
